FAERS Safety Report 17371956 (Version 7)
Quarter: 2020Q2

REPORT INFORMATION
  Report Type: Spontaneous
  Country: GB (occurrence: GB)
  Receive Date: 20200205
  Receipt Date: 20200608
  Transmission Date: 20200713
  Serious: Yes (Hospitalization, Other)
  Sender: FDA-Public Use
  Company Number: GB-SA-2020SA028782

PATIENT

DRUGS (19)
  1. CO-AMOXICLAV [AMOXICILLIN;CLAVULANATE POTASSIUM] [Concomitant]
     Active Substance: AMOXICILLIN\CLAVULANATE POTASSIUM
     Indication: C-REACTIVE PROTEIN INCREASED
  2. CALCIUM AND VITAMIN D [Concomitant]
     Active Substance: CALCIUM\VITAMIN D
     Indication: SUPPLEMENTATION THERAPY
     Dosage: 1 DF, QD
     Route: 048
     Dates: start: 20190816
  3. FLUCONAZOLE. [Concomitant]
     Active Substance: FLUCONAZOLE
     Indication: STEM CELL TRANSPLANT
     Dosage: 50 MG, QD
     Route: 048
     Dates: start: 20190816, end: 20190909
  4. RED BLOOD CELLS [Concomitant]
     Active Substance: HUMAN RED BLOOD CELL
     Indication: SUPPORTIVE CARE
     Dosage: 1 U, PRN (6 GIVEN IN TOTAL)
     Route: 042
     Dates: start: 20190821, end: 20190902
  5. CODEINE [Concomitant]
     Active Substance: CODEINE
     Indication: HEADACHE
     Dosage: 30 MG, QID
     Route: 048
     Dates: start: 20190819, end: 20190907
  6. URSODEOXYCHOLIC ACID [Concomitant]
     Active Substance: URSODIOL
     Indication: CHOLANGITIS SCLEROSING
     Dosage: 1.4 G, QD
     Route: 048
     Dates: start: 20131206, end: 20191017
  7. MAGNESIUM SULPHATE [MAGNESIUM SULFATE] [Concomitant]
     Active Substance: MAGNESIUM SULFATE
     Indication: STEM CELL TRANSPLANT
     Dosage: 500 ML, QD
     Route: 042
     Dates: start: 20190820, end: 20190820
  8. FUROSEMIDE. [Concomitant]
     Active Substance: FUROSEMIDE
     Indication: PLEURAL EFFUSION
     Dosage: 20 MG, QD
     Route: 042
     Dates: start: 20190819, end: 20190820
  9. OMEPRAZOLE. [Concomitant]
     Active Substance: OMEPRAZOLE
     Indication: STEM CELL TRANSPLANT
     Dosage: 20 MG, QD
     Route: 048
     Dates: start: 20190816, end: 20190907
  10. CO-AMOXICLAV [AMOXICILLIN;CLAVULANATE POTASSIUM] [Concomitant]
     Active Substance: AMOXICILLIN\CLAVULANATE POTASSIUM
     Indication: WHITE BLOOD CELL COUNT INCREASED
  11. LEVOMEPROMAZINE [Concomitant]
     Active Substance: LEVOMEPROMAZINE
     Indication: NAUSEA
     Dosage: 6.2 MG, QID
     Route: 048
     Dates: start: 20190820, end: 20190907
  12. CHLORPHENAMINE [Concomitant]
     Active Substance: CHLORPHENIRAMINE MALEATE
     Indication: STEM CELL TRANSPLANT
     Dosage: 10 MG, TID
     Route: 042
     Dates: start: 20190821, end: 20190907
  13. DEXAMETHASONE. [Concomitant]
     Active Substance: DEXAMETHASONE
     Indication: STEM CELL TRANSPLANT
     Dosage: 16 MG, QD
     Route: 048
     Dates: start: 20190819, end: 20190821
  14. ONDANSETRON [Concomitant]
     Active Substance: ONDANSETRON
     Indication: STEM CELL TRANSPLANT
     Dosage: 8 MG, QD
     Route: 048
     Dates: start: 20190819, end: 20190819
  15. COLECALCIFEROL [Concomitant]
     Active Substance: CHOLECALCIFEROL
     Indication: SUPPLEMENTATION THERAPY
     Dosage: 1 DF, BID
     Route: 048
     Dates: start: 20190820, end: 20190909
  16. SODIUM CHLORIDE 0.9% [Concomitant]
     Active Substance: SODIUM CHLORIDE
     Indication: DEHYDRATION
     Dosage: IVNOS1000 ML, QD
     Route: 042
     Dates: start: 20190820, end: 20190820
  17. CO-AMOXICLAV [AMOXICILLIN;CLAVULANATE POTASSIUM] [Concomitant]
     Active Substance: AMOXICILLIN\CLAVULANATE POTASSIUM
     Indication: INFECTION
     Dosage: 1200 MG, TID
     Route: 042
     Dates: start: 20190820, end: 20190825
  18. THYMOGLOBULINE [Suspect]
     Active Substance: LAPINE T-LYMPHOCYTE IMMUNE GLOBULIN
     Indication: PROPHYLAXIS AGAINST TRANSPLANT REJECTION
     Dosage: 165 MG, QD
     Route: 042
     Dates: start: 20190819, end: 20190821
  19. LEVOMEPROMAZINE [Concomitant]
     Active Substance: LEVOMEPROMAZINE
     Indication: VOMITING

REACTIONS (9)
  - Oedema peripheral [Not Recovered/Not Resolved]
  - Rash [Unknown]
  - Drug hypersensitivity [Unknown]
  - Neutropenia [Unknown]
  - Respiratory failure [Unknown]
  - Anaemia [Unknown]
  - Renal failure [Not Recovered/Not Resolved]
  - Blood creatinine increased [Not Recovered/Not Resolved]
  - Thrombotic microangiopathy [Not Recovered/Not Resolved]

NARRATIVE: CASE EVENT DATE: 20191120
